FAERS Safety Report 11697837 (Version 1)
Quarter: 2015Q4

REPORT INFORMATION
  Report Type: Spontaneous
  Country: US (occurrence: US)
  Receive Date: 20151104
  Receipt Date: 20151104
  Transmission Date: 20160304
  Serious: No
  Sender: FDA-Public Use
  Company Number: US-ELI_LILLY_AND_COMPANY-US201012001709

PATIENT
  Age: 76 Year
  Sex: Female

DRUGS (2)
  1. FORTEO [Suspect]
     Active Substance: TERIPARATIDE
     Indication: OSTEOPOROSIS
     Dosage: 20 UG, DAILY (1/D)
     Dates: start: 200812
  2. ACTONEL [Concomitant]
     Active Substance: RISEDRONATE SODIUM

REACTIONS (5)
  - Musculoskeletal disorder [Unknown]
  - Mass [Unknown]
  - Drug dose omission [Unknown]
  - Trigger finger [Unknown]
  - Soft tissue disorder [Unknown]

NARRATIVE: CASE EVENT DATE: 20100804
